FAERS Safety Report 9548440 (Version 1)
Quarter: 2013Q2

REPORT INFORMATION
  Report Type: Spontaneous
  Country: US (occurrence: None)
  Receive Date: 20130627
  Receipt Date: 20130627
  Transmission Date: 20140414
  Serious: No
  Sender: FDA-Public Use
  Company Number: 1000043202

PATIENT
  Age: 82 Year
  Sex: Male

DRUGS (6)
  1. LINZESS [Suspect]
     Indication: CONSTIPATION
     Route: 048
     Dates: start: 201302, end: 201302
  2. CLONAZEPAM (CLONAZEPAM) (CLONAZEPAM) [Concomitant]
  3. CLOMIPRAMINE (CLOIPRAMIDE) (CLOMIPRAMIDE) [Concomitant]
  4. LANSOPRAZOLE (LANSOPRAZOLE) (LANSOPRAZOLE) [Concomitant]
  5. VYTORIN (INEGY) (INEGY) [Concomitant]
  6. CARVEDILOL (CARVEDILOL) (CARVEDILOL) [Concomitant]

REACTIONS (1)
  - Dyspepsia [None]
